FAERS Safety Report 20709638 (Version 2)
Quarter: 2022Q2

REPORT INFORMATION
  Report Type: Spontaneous
  Country: CN (occurrence: CN)
  Receive Date: 20220414
  Receipt Date: 20220419
  Transmission Date: 20220721
  Serious: Yes (Other)
  Sender: FDA-Public Use
  Company Number: CN-009507513-2204CHN004577

PATIENT
  Age: 68 Year
  Sex: Female
  Weight: 53 kg

DRUGS (2)
  1. INVANZ [Suspect]
     Active Substance: ERTAPENEM SODIUM
     Indication: Anti-infective therapy
     Dosage: 1G, QD
     Route: 041
     Dates: start: 20220214, end: 20220215
  2. INVANZ [Suspect]
     Active Substance: ERTAPENEM SODIUM
     Indication: Sepsis

REACTIONS (7)
  - Epilepsy [Recovered/Resolved]
  - Toxic encephalopathy [Recovered/Resolved]
  - Epilepsy [Recovering/Resolving]
  - Hyperhidrosis [Recovering/Resolving]
  - Hypertension [Unknown]
  - Fatigue [Unknown]
  - Dizziness [Unknown]

NARRATIVE: CASE EVENT DATE: 20220215
